FAERS Safety Report 13264010 (Version 1)
Quarter: 2017Q1

REPORT INFORMATION
  Report Type: Spontaneous
  Country: US (occurrence: US)
  Receive Date: 20170222
  Receipt Date: 20170222
  Transmission Date: 20170428
  Serious: Yes (Death)
  Sender: FDA-Public Use
  Company Number: None

PATIENT
  Sex: Male
  Weight: 75.1 kg

DRUGS (1)
  1. AMIODARONE [Suspect]
     Active Substance: AMIODARONE
     Indication: ATRIAL FIBRILLATION
     Route: 048

REACTIONS (5)
  - Respiratory failure [None]
  - Systolic dysfunction [None]
  - Toxicity to various agents [None]
  - Pulmonary oedema [None]
  - Pulmonary fibrosis [None]

NARRATIVE: CASE EVENT DATE: 20160907
